FAERS Safety Report 4422043-4 (Version None)
Quarter: 2004Q3

REPORT INFORMATION
  Report Type: 
  Country: None (occurrence: None)
  Receive Date: 20040806
  Receipt Date: 20040727
  Transmission Date: 20050211
  Serious: No
  Sender: FDA-Public Use
  Company Number: 2004UW10950

PATIENT
  Age: 57 Year
  Sex: Female

DRUGS (4)
  1. SEROQUEL [Suspect]
     Indication: SCHIZOPHRENIA, PARANOID TYPE
     Dosage: 600-800 MG/DAILY
     Dates: start: 20020604, end: 20040516
  2. ZESTRIL [Concomitant]
  3. LASIX [Concomitant]
  4. ACTOS [Concomitant]

REACTIONS (4)
  - FULL BLOOD COUNT ABNORMAL [None]
  - NEUTROPENIA [None]
  - PLATELET COUNT DECREASED [None]
  - WHITE BLOOD CELL COUNT DECREASED [None]
